FAERS Safety Report 23178161 (Version 1)
Quarter: 2023Q4

REPORT INFORMATION
  Report Type: Spontaneous
  Country: US (occurrence: US)
  Receive Date: 20231113
  Receipt Date: 20231113
  Transmission Date: 20240109
  Serious: Yes (Disabling)
  Sender: FDA-Public Use
  Company Number: US-PFIZER INC-PV202300183655

PATIENT
  Age: 51 Year
  Sex: Female

DRUGS (2)
  1. IBRANCE [Suspect]
     Active Substance: PALBOCICLIB
     Dosage: 75 MG, DAILY
     Route: 048
     Dates: start: 20230703, end: 202309
  2. IBRANCE [Suspect]
     Active Substance: PALBOCICLIB
     Dosage: LOWER DOSING INTERVAL OF EVERY OTHER DAY, ALTERNATE DAY

REACTIONS (2)
  - Speech disorder [Recovering/Resolving]
  - Off label use [Unknown]
